FAERS Safety Report 9126446 (Version 2)
Quarter: 2013Q2

REPORT INFORMATION
  Report Type: Spontaneous
  Country: US (occurrence: US)
  Receive Date: 20130121
  Receipt Date: 20130619
  Transmission Date: 20140414
  Serious: Yes (Other)
  Sender: FDA-Public Use
  Company Number: CHPA2013US001027

PATIENT
  Age: 72 Year
  Sex: Female

DRUGS (2)
  1. EXCEDRIN EXTRA STRENGTH [Suspect]
     Indication: BACK PAIN
     Dosage: 1 CAPLET, UNK
     Route: 048
  2. ADVIL//IBUPROFEN [Concomitant]

REACTIONS (5)
  - Foot fracture [Recovering/Resolving]
  - Bone disorder [Recovering/Resolving]
  - Uterine prolapse [Unknown]
  - Therapeutic response unexpected [Unknown]
  - Off label use [Unknown]
